FAERS Safety Report 4968651-3 (Version None)
Quarter: 2006Q2

REPORT INFORMATION
  Report Type: 
  Country: None (occurrence: None)
  Receive Date: 20060405
  Receipt Date: 20060322
  Transmission Date: 20061013
  Serious: Yes (Hospitalization)
  Sender: FDA-Public Use
  Company Number: 2006040095

PATIENT
  Age: 69 Year
  Sex: Female

DRUGS (1)
  1. GENOTROPIN [Suspect]
     Indication: HYPOPITUITARISM
     Dosage: 0.3 MG (0.3 MG, EVERY DAY), SUBCUTANEOUS
     Route: 058
     Dates: start: 20020912

REACTIONS (1)
  - CARPAL TUNNEL SYNDROME [None]
